FAERS Safety Report 13462484 (Version 1)
Quarter: 2017Q2

REPORT INFORMATION
  Report Type: Spontaneous
  Country: US (occurrence: US)
  Receive Date: 20170420
  Receipt Date: 20170420
  Transmission Date: 20170830
  Serious: Yes (Hospitalization)
  Sender: FDA-Public Use
  Company Number: US-009507513-1704USA005153

PATIENT
  Sex: Male

DRUGS (1)
  1. TEMODAR [Suspect]
     Active Substance: TEMOZOLOMIDE
     Indication: PINEALOBLASTOMA
     Dosage: ^185^ DAILY
     Route: 065
     Dates: start: 20170403, end: 201704

REACTIONS (4)
  - Asthenia [Unknown]
  - Off label use [Unknown]
  - Off label use [Unknown]
  - Feeding tube user [Unknown]

NARRATIVE: CASE EVENT DATE: 201704
